FAERS Safety Report 7927570 (Version 8)
Quarter: 2012Q4

REPORT INFORMATION
  Report Type: 
  Country: US (occurrence: US)
  Receive Date: 20110411
  Receipt Date: 20120919
  Transmission Date: 20130627
  Serious: Yes (Hospitalization, Other)
  Sender: FDA-Public Use
  Company Number: US-009507513-2010SP056198

PATIENT

DRUGS (3)
  1. NUVARING [Suspect]
     Indication: CONTRACEPTION
     Dates: start: 20050413, end: 20050529
  2. VITAMINS [Concomitant]
     Dosage: UNK UNK, QD
  3. COUMADIN [Suspect]
     Indication: DEEP VEIN THROMBOSIS
     Dosage: UNK

REACTIONS (7)
  - Hypercoagulation [Unknown]
  - Deep vein thrombosis [Recovering/Resolving]
  - Ligament sprain [Unknown]
  - Palpitations [Unknown]
  - Extrasystoles [Unknown]
  - Contusion [Unknown]
  - Tricuspid valve incompetence [Unknown]
